FAERS Safety Report 21301788 (Version 1)
Quarter: 2022Q3

REPORT INFORMATION
  Report Type: Spontaneous
  Country: GB (occurrence: GB)
  Receive Date: 20220907
  Receipt Date: 20220907
  Transmission Date: 20221027
  Serious: Yes (Disabling)
  Sender: FDA-Public Use
  Company Number: None

PATIENT
  Age: 45 Year
  Sex: Male

DRUGS (1)
  1. RISPERIDONE [Suspect]
     Active Substance: RISPERIDONE
     Indication: Head injury
     Dosage: 2 MILIGRAMS TWICE A DAY
     Route: 065
     Dates: start: 20150504

REACTIONS (6)
  - Headache [Not Recovered/Not Resolved]
  - Nystagmus [Unknown]
  - Muscle spasms [Unknown]
  - Wheezing [Unknown]
  - Muscle twitching [Unknown]
  - Weight increased [Unknown]

NARRATIVE: CASE EVENT DATE: 20150504
